FAERS Safety Report 9187440 (Version 1)
Quarter: 2013Q1

REPORT INFORMATION
  Report Type: Spontaneous
  Country: KR (occurrence: KR)
  Receive Date: 20130325
  Receipt Date: 20130325
  Transmission Date: 20140127
  Serious: Yes (Hospitalization)
  Sender: FDA-Public Use
  Company Number: KR-BAYER-2013-032105

PATIENT
  Sex: Female

DRUGS (1)
  1. GLUCOBAY [Suspect]
     Route: 048

REACTIONS (2)
  - Shock [None]
  - Dizziness [None]
